FAERS Safety Report 7379562-0 (Version None)
Quarter: 2011Q1

REPORT INFORMATION
  Report Type: 
  Country: None (occurrence: None)
  Receive Date: 20110329
  Receipt Date: 20110321
  Transmission Date: 20110831
  Serious: Yes (Hospitalization)
  Sender: FDA-Public Use
  Company Number: AR-AMGEN-ARGSP2011010681

PATIENT
  Age: 41 Year
  Sex: Female
  Weight: 63 kg

DRUGS (4)
  1. NAPROXEN [Concomitant]
     Dosage: 500 MG, 2X/DAY
     Route: 048
  2. ENBREL [Suspect]
     Dosage: UNK
     Dates: start: 20110101
  3. ENBREL [Suspect]
     Indication: RHEUMATOID ARTHRITIS
     Dosage: 50 MG, WEEKLY
     Route: 058
     Dates: start: 20070701, end: 20101005
  4. METHOTREXATE                       /00113802/ [Concomitant]
     Dosage: 1.5 MG, WEEKLY
     Route: 048

REACTIONS (2)
  - RHEUMATOID ARTHRITIS [None]
  - JOINT ARTHROPLASTY [None]
